FAERS Safety Report 25438324 (Version 1)
Quarter: 2025Q2

REPORT INFORMATION
  Report Type: Spontaneous
  Country: AU (occurrence: AU)
  Receive Date: 20250616
  Receipt Date: 20250616
  Transmission Date: 20250717
  Serious: Yes (Other)
  Sender: ALKEM
  Company Number: None

PATIENT
  Age: 44 Year
  Sex: Male

DRUGS (3)
  1. CINACALCET [Suspect]
     Active Substance: CINACALCET
     Indication: Product used for unknown indication
     Route: 065
  2. HEPARIN SODIUM [Concomitant]
     Active Substance: HEPARIN SODIUM
     Indication: Product used for unknown indication
     Route: 065
  3. WARFARIN SODIUM [Concomitant]
     Active Substance: WARFARIN SODIUM
     Indication: Product used for unknown indication
     Route: 065

REACTIONS (8)
  - Retinal artery occlusion [Unknown]
  - Calciphylaxis [Unknown]
  - Optic ischaemic neuropathy [Unknown]
  - Blood parathyroid hormone increased [Unknown]
  - Blood phosphorus increased [Unknown]
  - Platelet count decreased [Unknown]
  - Drug ineffective for unapproved indication [Unknown]
  - Off label use [Unknown]
